FAERS Safety Report 5442096-4 (Version None)
Quarter: 2007Q3

REPORT INFORMATION
  Report Type: 
  Country: None (occurrence: None)
  Receive Date: 20070904
  Receipt Date: 20070824
  Transmission Date: 20080115
  Serious: Yes (Hospitalization)
  Sender: FDA-Public Use
  Company Number: FR-ROCHE-513403

PATIENT
  Age: 86 Year
  Sex: Female

DRUGS (3)
  1. CLONAZEPAM [Suspect]
     Indication: DRUG USE FOR UNKNOWN INDICATION
     Dosage: RIVOTRIL ROCHE.
     Route: 048
     Dates: start: 20061124
  2. ALLOPURINOL [Suspect]
     Indication: DRUG USE FOR UNKNOWN INDICATION
     Route: 048
     Dates: start: 20060220, end: 20060412
  3. COUMADIN [Suspect]
     Route: 048
     Dates: start: 20070214, end: 20070510

REACTIONS (3)
  - CUTANEOUS VASCULITIS [None]
  - DERMATITIS EXFOLIATIVE [None]
  - SKIN NECROSIS [None]
